FAERS Safety Report 9803311 (Version 1)
Quarter: 2014Q1

REPORT INFORMATION
  Report Type: Spontaneous
  Country: US (occurrence: US)
  Receive Date: 20140108
  Receipt Date: 20140108
  Transmission Date: 20141002
  Serious: Yes (Death, Other)
  Sender: FDA-Public Use
  Company Number: US-UCBSA-108422

PATIENT
  Sex: Male

DRUGS (5)
  1. METHYLPHENIDATE [Suspect]
  2. PROPRANOLOL [Suspect]
  3. LITHIUM [Suspect]
  4. TRAMADOL [Suspect]
  5. QUETIAPINE [Suspect]

REACTIONS (1)
  - Completed suicide [Fatal]
